FAERS Safety Report 5317435-5 (Version None)
Quarter: 2007Q2

REPORT INFORMATION
  Report Type: 
  Country: None (occurrence: None)
  Receive Date: 20070503
  Receipt Date: 20070503
  Transmission Date: 20071010
  Serious: Yes (Hospitalization)
  Sender: FDA-Public Use
  Company Number: None

PATIENT
  Age: 49 Year
  Sex: Female
  Weight: 61.2356 kg

DRUGS (4)
  1. BEVACIZUMAB [Suspect]
     Indication: RECTAL CANCER
     Dosage: 5MG/KG IV
     Route: 042
     Dates: start: 20070309, end: 20070423
  2. OXALIPLATIN [Suspect]
     Indication: RECTAL CANCER
     Dosage: 85 MG/M2 AND 40 MG/M2
     Dates: start: 20070309, end: 20070423
  3. LEUCOVORIN 400MG/M2 [Suspect]
     Indication: RECTAL CANCER
     Dosage: 400MG/M2
     Dates: start: 20070309, end: 20070323
  4. FLUOROURACIL [Suspect]
     Indication: RECTAL CANCER
     Dosage: 400MG/M2
     Dates: start: 20070309, end: 20070429

REACTIONS (12)
  - ABDOMINAL PAIN [None]
  - CHAPPED LIPS [None]
  - CHEILITIS [None]
  - DIARRHOEA [None]
  - ENTERITIS [None]
  - FLATULENCE [None]
  - HEART RATE INCREASED [None]
  - LIP DRY [None]
  - NAUSEA [None]
  - PYREXIA [None]
  - RECTAL HAEMORRHAGE [None]
  - RESPIRATORY RATE INCREASED [None]
